FAERS Safety Report 4947698-7 (Version None)
Quarter: 2006Q1

REPORT INFORMATION
  Report Type: 
  Country: None (occurrence: None)
  Receive Date: 20060313
  Receipt Date: 20060303
  Transmission Date: 20060701
  Serious: Yes (Hospitalization, Other)
  Sender: FDA-Public Use
  Company Number: 2005-03-1480

PATIENT
  Age: 41 Year
  Sex: Male
  Weight: 66 kg

DRUGS (11)
  1. PEG-INTRON [Suspect]
     Indication: HEPATITIS C
     Dosage: SEE IMAGE
     Route: 058
     Dates: start: 20050222, end: 20050222
  2. PEG-INTRON [Suspect]
     Indication: HEPATITIS C
     Dosage: SEE IMAGE
     Route: 058
     Dates: start: 20050301
  3. REBETOL [Suspect]
     Indication: HEPATITIS C
     Dosage: 800 MG ORAL
     Route: 048
     Dates: start: 20050222
  4. CLONAZEPAM [Concomitant]
  5. DOGMATYL [Concomitant]
  6. SOLANAX [Concomitant]
  7. DORAL [Concomitant]
  8. HALCION [Concomitant]
  9. LEXOTAN [Concomitant]
  10. DEPAS [Concomitant]
  11. PAXIL [Concomitant]

REACTIONS (3)
  - AGRANULOCYTOSIS [None]
  - NEUTROPENIA [None]
  - PLATELET COUNT DECREASED [None]
